FAERS Safety Report 4518277-0 (Version None)
Quarter: 2004Q4

REPORT INFORMATION
  Report Type: 
  Country: None (occurrence: None)
  Receive Date: 20041202
  Receipt Date: 20041116
  Transmission Date: 20050328
  Serious: Yes (Other)
  Sender: FDA-Public Use
  Company Number: 2004BI000077

PATIENT
  Age: 40 Year
  Sex: Female

DRUGS (1)
  1. AVONEX [Suspect]
     Indication: MULTIPLE SCLEROSIS
     Dosage: 30 UG; QW; IM
     Route: 030
     Dates: start: 20040123, end: 20040101

REACTIONS (3)
  - CARDIAC VALVE DISEASE [None]
  - CHEST PAIN [None]
  - CONGENITAL ATRIAL SEPTAL DEFECT [None]
